FAERS Safety Report 7002506-8 (Version None)
Quarter: 2010Q3

REPORT INFORMATION
  Report Type: 
  Country: None (occurrence: None)
  Receive Date: 20100920
  Receipt Date: 20100517
  Transmission Date: 20110219
  Serious: Yes (Other)
  Sender: FDA-Public Use
  Company Number: US-ASTRAZENECA-2009UW20777

PATIENT
  Age: 691 Month
  Sex: Female
  Weight: 96.2 kg

DRUGS (9)
  1. SEROQUEL [Suspect]
     Dosage: 25 MG TABLET 2 HS
     Route: 048
     Dates: start: 20030901
  2. SEROQUEL [Suspect]
     Route: 048
     Dates: start: 20070101
  3. SEROQUEL [Suspect]
     Route: 048
     Dates: start: 20070101
  4. TRAZODONE HCL [Concomitant]
     Route: 048
     Dates: start: 20030901
  5. TOPAMAX [Concomitant]
     Route: 048
     Dates: start: 20030901
  6. PAROXETINE HCL [Concomitant]
     Route: 048
     Dates: start: 20070101
  7. LORAZEPAM [Concomitant]
     Route: 048
     Dates: start: 20070101
  8. GABAPENTIN [Concomitant]
     Route: 048
     Dates: start: 20070101
  9. ZYPREXA [Concomitant]
     Dates: start: 20060801

REACTIONS (3)
  - DIABETES MELLITUS [None]
  - KETOACIDOSIS [None]
  - PANCREATITIS [None]
